FAERS Safety Report 14015166 (Version 1)
Quarter: 2017Q3

REPORT INFORMATION
  Report Type: Spontaneous
  Country: US (occurrence: US)
  Receive Date: 20170927
  Receipt Date: 20170927
  Transmission Date: 20171128
  Serious: Yes (Life-Threatening, Hospitalization, Other)
  Sender: FDA-Public Use
  Company Number: US-TESARO, INC-US-2017TSO03033

PATIENT

DRUGS (1)
  1. ZEJULA [Suspect]
     Active Substance: NIRAPARIB
     Indication: OVARIAN CANCER RECURRENT
     Dosage: 300 MG, QD, EVERY NIGHT
     Route: 048
     Dates: start: 20170830, end: 20170905

REACTIONS (8)
  - Red blood cell count decreased [Unknown]
  - Pruritus generalised [Unknown]
  - Weight decreased [Not Recovered/Not Resolved]
  - Platelet count decreased [Unknown]
  - Pain [Unknown]
  - Liver disorder [Unknown]
  - Adverse reaction [Unknown]
  - Erythema [Unknown]

NARRATIVE: CASE EVENT DATE: 201709
